FAERS Safety Report 11060794 (Version 1)
Quarter: 2015Q2

REPORT INFORMATION
  Report Type: Spontaneous
  Country: US (occurrence: US)
  Receive Date: 20150423
  Receipt Date: 20150423
  Transmission Date: 20150821
  Serious: No
  Sender: FDA-Public Use
  Company Number: US-ASTRAZENECA-2015SE37336

PATIENT
  Sex: Female

DRUGS (19)
  1. QUININE [Suspect]
     Active Substance: QUININE
     Indication: MUSCLE SPASMS
  2. MUCINEX [Concomitant]
     Active Substance: GUAIFENESIN
  3. METHYLDOPA. [Concomitant]
     Active Substance: METHYLDOPA
     Dates: start: 2013
  4. CENTRUM SILVER 50 + [Concomitant]
     Dates: start: 2000
  5. PRILOSEC [Suspect]
     Active Substance: OMEPRAZOLE MAGNESIUM
     Route: 048
  6. BENICAR [Concomitant]
     Active Substance: OLMESARTAN MEDOXOMIL
     Dates: start: 2014
  7. MAGNESIUM [Concomitant]
     Active Substance: MAGNESIUM
     Dates: start: 2010
  8. SYNTHROID [Concomitant]
     Active Substance: LEVOTHYROXINE SODIUM
     Dates: start: 2008
  9. BUMEX [Concomitant]
     Active Substance: BUMETANIDE
     Dates: start: 2008
  10. ATROVENT [Concomitant]
     Active Substance: IPRATROPIUM BROMIDE
     Dates: start: 2014
  11. B3 [Concomitant]
     Dates: start: 2000
  12. CALCIUM 600 + D3 [Concomitant]
     Dates: start: 2000
  13. OMEPRAZOLE. [Concomitant]
     Active Substance: OMEPRAZOLE
     Dates: start: 2010
  14. ASA [Concomitant]
     Active Substance: ASPIRIN
     Dates: start: 2000
  15. SPIRONOLACTONE. [Suspect]
     Active Substance: SPIRONOLACTONE
     Indication: HYPERTENSION
     Dosage: DAILY
  16. COREG [Concomitant]
     Active Substance: CARVEDILOL
     Dates: start: 2006
  17. XANAX [Concomitant]
     Active Substance: ALPRAZOLAM
     Dates: start: 2000
  18. LACTOBACILLUS [Concomitant]
     Active Substance: LACTOBACILLUS ACIDOPHILUS
     Dates: start: 2012
  19. B COMPLEX WITH VITAMIN C [Concomitant]
     Dates: start: 2000

REACTIONS (2)
  - Trigger finger [Unknown]
  - Muscle spasms [Unknown]
